FAERS Safety Report 8152150-4 (Version None)
Quarter: 2012Q1

REPORT INFORMATION
  Report Type: 
  Country: None (occurrence: None)
  Receive Date: 20120214
  Receipt Date: 20120131
  Transmission Date: 20120608
  Serious: Yes (Hospitalization)
  Sender: FDA-Public Use
  Company Number: 2012-000402

PATIENT
  Age: 17 Year
  Sex: Male

DRUGS (6)
  1. CALCIUM CARBONATE [Concomitant]
  2. OMEPRAZOLE [Concomitant]
  3. MESALAZINE (MESALAZINE), UNKNOWNMG [Suspect]
     Indication: COLITIS ULCERATIVE
     Dosage: 2 GRAMS TWICE DAILY, ORAL
     Route: 048
  4. PROPRANOLOL [Concomitant]
  5. PREDNISOLONE [Concomitant]
  6. URSODIOL [Concomitant]

REACTIONS (5)
  - EOSINOPHILIA [None]
  - LEUKOCYTOSIS [None]
  - RESPIRATORY FAILURE [None]
  - ORGANISING PNEUMONIA [None]
  - NORMOCHROMIC NORMOCYTIC ANAEMIA [None]
